FAERS Safety Report 16268702 (Version 1)
Quarter: 2019Q2

REPORT INFORMATION
  Report Type: Spontaneous
  Country: US (occurrence: US)
  Receive Date: 20190503
  Receipt Date: 20190503
  Transmission Date: 20190711
  Serious: No
  Sender: FDA-Public Use
  Company Number: US-BAYER-2019-087996

PATIENT
  Sex: Male
  Weight: 79.37 kg

DRUGS (3)
  1. ASPIRIN CARDIO [Concomitant]
     Active Substance: ASPIRIN
     Dosage: UNK
     Dates: start: 2014
  2. CLARITIN [Suspect]
     Active Substance: LORATADINE
  3. DRISTAN COLD [CHLORPHENAMINE MALEATE;PARACETAMOL;PHENYLEPHRINE HYD [Concomitant]
     Indication: HYPERSENSITIVITY
     Dosage: 1 DF, PRN

REACTIONS (1)
  - Drug ineffective [None]
